FAERS Safety Report 8294344-3 (Version None)
Quarter: 2012Q2

REPORT INFORMATION
  Report Type: 
  Country: None (occurrence: None)
  Receive Date: 20120418
  Receipt Date: 20120409
  Transmission Date: 20120825
  Serious: Yes (Hospitalization, Other)
  Sender: FDA-Public Use
  Company Number: US-BRISTOL-MYERS SQUIBB COMPANY-16509101

PATIENT
  Age: 63 Year
  Sex: Male
  Weight: 92 kg

DRUGS (20)
  1. COUMADIN [Suspect]
     Indication: ATRIAL FIBRILLATION
     Dosage: UID/QD 1.5MG ALSO
     Dates: start: 20090831
  2. VORICONAZOLE [Concomitant]
     Dates: start: 20090701
  3. MULTI-VITAMIN [Concomitant]
  4. DIGOXIN [Concomitant]
  5. POTASSIUM CHLORIDE [Concomitant]
  6. MOXIFLOXACIN [Concomitant]
     Dates: start: 20090811
  7. NYSTATIN [Concomitant]
  8. EDECRIN [Concomitant]
  9. NPH INSULIN [Concomitant]
  10. PROGRAF [Suspect]
     Indication: GRAFT VERSUS HOST DISEASE
     Dosage: UID/QD
     Dates: end: 20090821
  11. PREDNISONE TAB [Concomitant]
     Dates: start: 20090731
  12. FOLIC ACID [Concomitant]
  13. ACYCLOVIR [Concomitant]
  14. ALLOPURINOL [Concomitant]
  15. NEURONTIN [Concomitant]
  16. AMBIEN [Concomitant]
  17. MEPRON [Concomitant]
  18. PRILOSEC [Concomitant]
  19. OXYCONTIN [Concomitant]
  20. OXYCODONE HCL [Concomitant]

REACTIONS (5)
  - BRONCHITIS [None]
  - BACK PAIN [None]
  - PNEUMONIA [None]
  - POSTERIOR REVERSIBLE ENCEPHALOPATHY SYNDROME [None]
  - INTERNATIONAL NORMALISED RATIO INCREASED [None]
